FAERS Safety Report 8789016 (Version 2)
Quarter: 2012Q4

REPORT INFORMATION
  Report Type: 
  Country: US (occurrence: US)
  Receive Date: 20120916
  Receipt Date: 20121102
  Transmission Date: 20130627
  Serious: No
  Sender: FDA-Public Use
  Company Number: US-009507513-1208USA001704

PATIENT
  Age: 13 Year
  Sex: Male
  Weight: 42.18 kg

DRUGS (1)
  1. DULERA [Suspect]
     Indication: ASTHMA
     Dosage: 2 DF, q12h
     Route: 048

REACTIONS (1)
  - Lip swelling [Recovered/Resolved]
